FAERS Safety Report 11434383 (Version 1)
Quarter: 2015Q3

REPORT INFORMATION
  Report Type: Spontaneous
  Country: US (occurrence: None)
  Receive Date: 20150828
  Receipt Date: 20150828
  Transmission Date: 20151125
  Serious: Yes (Other)
  Sender: FDA-Public Use
  Company Number: None

PATIENT
  Age: 65 Year
  Sex: Female
  Weight: 67.13 kg

DRUGS (7)
  1. NEXIUM [Concomitant]
     Active Substance: ESOMEPRAZOLE MAGNESIUM
  2. CALCIUM [Suspect]
     Active Substance: CALCIUM
  3. PROCTOSOL HC [Concomitant]
  4. FIBER GUMMIES [Concomitant]
  5. TRANSDERM SCOP [Suspect]
     Active Substance: SCOPOLAMINE
     Indication: VERTIGO
     Dosage: 1 PATCH CHANGE AFTER 72 HOUR APPLIED AS MEDICATED PATCH TO SKIN
     Dates: start: 20150810, end: 20150816
  6. FLONASE [Concomitant]
     Active Substance: FLUTICASONE PROPIONATE
  7. MULTIVITAMIN [Concomitant]
     Active Substance: VITAMINS

REACTIONS (3)
  - Abdominal pain upper [None]
  - Muscular weakness [None]
  - Drug withdrawal syndrome [None]

NARRATIVE: CASE EVENT DATE: 20150816
